FAERS Safety Report 7406216-4 (Version None)
Quarter: 2011Q2

REPORT INFORMATION
  Report Type: 
  Country: None (occurrence: None)
  Receive Date: 20110411
  Receipt Date: 20110330
  Transmission Date: 20111010
  Serious: Yes (Disabling, Other)
  Sender: FDA-Public Use
  Company Number: ES-SANOFI-AVENTIS-2011SA014586

PATIENT
  Age: 58 Year
  Sex: Male

DRUGS (8)
  1. MULTAQ [Suspect]
     Indication: ATRIAL FIBRILLATION
     Route: 048
  2. ALL OTHER THERAPEUTIC PRODUCTS [Concomitant]
  3. ALL OTHER THERAPEUTIC PRODUCTS [Concomitant]
  4. IRBESARTAN [Concomitant]
  5. OXYGEN [Concomitant]
  6. ORAL ANTIDIABETICS [Concomitant]
     Indication: DIABETES MELLITUS
  7. ACENOCOUMAROL [Concomitant]
  8. ATENOLOL [Concomitant]

REACTIONS (7)
  - ABDOMINAL PAIN [None]
  - RENAL IMPAIRMENT [None]
  - BLOOD CREATININE INCREASED [None]
  - LIVER INJURY [None]
  - BLOOD UREA INCREASED [None]
  - FATIGUE [None]
  - ABASIA [None]
